FAERS Safety Report 4397646-6 (Version None)
Quarter: 2004Q3

REPORT INFORMATION
  Report Type: 
  Country: None (occurrence: None)
  Receive Date: 20040712
  Receipt Date: 20040629
  Transmission Date: 20050211
  Serious: Yes (Hospitalization, Other)
  Sender: FDA-Public Use
  Company Number: 2004-06-2132

PATIENT
  Age: 56 Year
  Sex: Female

DRUGS (5)
  1. REBETOL [Suspect]
     Indication: HEPATITIS C
     Dosage: 600 MG ORAL
     Route: 048
     Dates: start: 20040412, end: 20040619
  2. INTRON A [Suspect]
     Indication: HEPATITIS C
     Dosage: 6 MIU INTRAMUSCULAR
     Route: 030
     Dates: start: 20040412, end: 20040619
  3. URSO TABLETS [Concomitant]
  4. STRONGER NEO MINOPHAGEN C [Concomitant]
  5. VITAMEDIN CAPSULE [Concomitant]

REACTIONS (4)
  - ABASIA [None]
  - ANOREXIA [None]
  - INSOMNIA [None]
  - NYSTAGMUS [None]
